FAERS Safety Report 9050507 (Version 2)
Quarter: 2013Q2

REPORT INFORMATION
  Report Type: Spontaneous
  Country: US (occurrence: US)
  Receive Date: 20130205
  Receipt Date: 20130419
  Transmission Date: 20140414
  Serious: Yes (Other)
  Sender: FDA-Public Use
  Company Number: US-009507513-1302USA000820

PATIENT
  Age: 55 Year
  Sex: Female

DRUGS (1)
  1. VICTRELIS [Suspect]
     Indication: CHRONIC HEPATITIS C
     Dosage: 800 MG, Q8H
     Route: 048
     Dates: start: 20120913

REACTIONS (3)
  - Anal pruritus [Unknown]
  - Fatigue [Unknown]
  - Depression [Unknown]
